FAERS Safety Report 24844057 (Version 1)
Quarter: 2025Q1

REPORT INFORMATION
  Report Type: Report from Study
  Country: SA (occurrence: SA)
  Receive Date: 20250115
  Receipt Date: 20250115
  Transmission Date: 20250409
  Serious: Yes (Hospitalization, Other)
  Sender: ALEXION PHARMACEUTICALS
  Company Number: SA-AstraZeneca-CH-00781585A

PATIENT
  Age: 46 Year

DRUGS (3)
  1. FASENRA [Suspect]
     Active Substance: BENRALIZUMAB
     Indication: Asthma
     Dosage: 30 MILLIGRAM, Q8W
  2. CORTISONE [Concomitant]
     Active Substance: CORTISONE
     Route: 065
  3. VENTOLIN [Concomitant]
     Active Substance: ALBUTEROL SULFATE
     Route: 065

REACTIONS (10)
  - Ear disorder [Unknown]
  - Nasal inflammation [Unknown]
  - Nasal polyps [Unknown]
  - Arterial disorder [Unknown]
  - Syncope [Unknown]
  - Dizziness [Unknown]
  - Dyspnoea [Unknown]
  - Nausea [Unknown]
  - Arterial flow velocity decreased [Unknown]
  - Vertebral lesion [Unknown]
